FAERS Safety Report 4286764-9 (Version None)
Quarter: 2004Q1

REPORT INFORMATION
  Report Type: 
  Country: None (occurrence: None)
  Receive Date: 20040206
  Receipt Date: 20040202
  Transmission Date: 20041129
  Serious: Yes (Hospitalization, Other)
  Sender: FDA-Public Use
  Company Number: US-BRISTOL-MYERS SQUIBB COMPANY-12494332

PATIENT
  Age: 83 Year
  Sex: Male
  Weight: 68 kg

DRUGS (8)
  1. TEQUIN [Suspect]
     Indication: PNEUMONIA
     Route: 048
     Dates: start: 20040116, end: 20040126
  2. AMARYL [Concomitant]
  3. NORVASC [Concomitant]
  4. VASOTEC [Concomitant]
  5. PRAVACHOL [Concomitant]
  6. DOXAZOSIN MESYLATE [Concomitant]
  7. LASIX [Concomitant]
  8. WARFARIN SODIUM [Concomitant]

REACTIONS (1)
  - BLOOD GLUCOSE INCREASED [None]
